FAERS Safety Report 18740494 (Version 1)
Quarter: 2021Q1

REPORT INFORMATION
  Report Type: Spontaneous
  Country: US (occurrence: US)
  Receive Date: 20210114
  Receipt Date: 20210114
  Transmission Date: 20210419
  Serious: No
  Sender: FDA-Public Use
  Company Number: None

PATIENT
  Age: 70 Year
  Sex: Male
  Weight: 133.24 kg

DRUGS (12)
  1. DEXAMETHASONE 6 MG [Concomitant]
     Dates: start: 20210111
  2. ALBUTEROL INHALER [Concomitant]
     Active Substance: ALBUTEROL
  3. REMDESIVIR. [Suspect]
     Active Substance: REMDESIVIR
     Indication: COVID-19
     Route: 042
     Dates: start: 20210110, end: 20210114
  4. ENOXAPARIN 40MG/0.4ML [Concomitant]
     Active Substance: ENOXAPARIN
  5. FLUOXETINE [Concomitant]
     Active Substance: FLUOXETINE HYDROCHLORIDE
  6. TRAZODONE [Concomitant]
     Active Substance: TRAZODONE HYDROCHLORIDE
  7. CHOLECALCIFEROL 10 MCG [Concomitant]
  8. METOPROLOL SUCCINATE 12.5 MG [Concomitant]
  9. PRAVASTATIN 20 MG [Concomitant]
     Active Substance: PRAVASTATIN
  10. PRAZOSIN 2 MG [Concomitant]
  11. KETOTIFEN SOLUTION OPHTHALMIC [Concomitant]
  12. ALLOPURINOL 200 MG [Concomitant]
     Active Substance: ALLOPURINOL

REACTIONS (2)
  - Aspartate aminotransferase increased [None]
  - Alanine aminotransferase increased [None]

NARRATIVE: CASE EVENT DATE: 20210114
